FAERS Safety Report 14840214 (Version 1)
Quarter: 2018Q2

REPORT INFORMATION
  Report Type: Spontaneous
  Country: US (occurrence: US)
  Receive Date: 20180503
  Receipt Date: 20180503
  Transmission Date: 20180711
  Serious: No
  Sender: FDA-Public Use
  Company Number: US-ASTRAZENECA-2018SE44699

PATIENT
  Age: 22958 Day
  Sex: Female
  Weight: 105.7 kg

DRUGS (1)
  1. BYDUREON [Suspect]
     Active Substance: EXENATIDE
     Indication: TYPE 2 DIABETES MELLITUS
     Dosage: UNKNOWN DOSE, ONCE A WEEK
     Route: 065
     Dates: start: 201803

REACTIONS (2)
  - Injection site mass [Unknown]
  - Product leakage [Unknown]

NARRATIVE: CASE EVENT DATE: 20180403
